FAERS Safety Report 9053971 (Version 1)
Quarter: 2013Q1

REPORT INFORMATION
  Report Type: Spontaneous
  Country: GB (occurrence: GB)
  Receive Date: 20130208
  Receipt Date: 20130208
  Transmission Date: 20140127
  Serious: Yes (Disabling)
  Sender: FDA-Public Use
  Company Number: GB-NOVOPROD-369744

PATIENT
  Age: 42 Year
  Sex: Male

DRUGS (3)
  1. VICTOZA [Suspect]
     Indication: DIABETES MELLITUS
     Dosage: 1.2 MG, QD
     Route: 058
     Dates: start: 200910, end: 20121123
  2. GLICLAZIDE [Concomitant]
     Indication: PRODUCT USED FOR UNKNOWN INDICATION
     Dosage: 90 MG, QD
  3. METFORMIN [Concomitant]
     Indication: PRODUCT USED FOR UNKNOWN INDICATION
     Dosage: 850 MG, BID

REACTIONS (1)
  - Tremor [Recovered/Resolved]
